FAERS Safety Report 4744736-1 (Version None)
Quarter: 2005Q3

REPORT INFORMATION
  Report Type: 
  Country: None (occurrence: None)
  Receive Date: 20050815
  Receipt Date: 20050805
  Transmission Date: 20060218
  Serious: Yes (Hospitalization)
  Sender: FDA-Public Use
  Company Number: AU-AMGEN-US145651

PATIENT
  Sex: Male
  Weight: 59 kg

DRUGS (9)
  1. ARANESP [Suspect]
     Indication: DIALYSIS
     Route: 042
     Dates: start: 20020101
  2. VITAMIN B COMPLEX CAP [Concomitant]
  3. ASCORBIC ACID [Concomitant]
  4. FOLIC ACID [Concomitant]
  5. GASTRO GEL [Concomitant]
  6. OROXINE [Concomitant]
  7. OMEPRAZOLE [Concomitant]
     Dates: start: 20050128
  8. FERRUM H [Concomitant]
  9. VALPROIC ACID [Concomitant]

REACTIONS (5)
  - ANAEMIA [None]
  - ANGIODYSPLASIA [None]
  - CONDITION AGGRAVATED [None]
  - DUODENAL ULCER [None]
  - MELAENA [None]
